FAERS Safety Report 12870932 (Version 1)
Quarter: 2016Q4

REPORT INFORMATION
  Report Type: Spontaneous
  Country: US (occurrence: US)
  Receive Date: 20161020
  Receipt Date: 20161020
  Transmission Date: 20170207
  Serious: Yes (Hospitalization)
  Sender: FDA-Public Use
  Company Number: None

PATIENT
  Age: 70 Year
  Sex: Male
  Weight: 122.3 kg

DRUGS (18)
  1. IRON [Concomitant]
     Active Substance: IRON
  2. PROPRANOLOL [Concomitant]
     Active Substance: PROPRANOLOL\PROPRANOLOL HYDROCHLORIDE
  3. EPCLUSA [Suspect]
     Active Substance: SOFOSBUVIR\VELPATASVIR
     Indication: HEPATITIS C
     Dosage: 400MG/100MG QD ORAL
     Route: 048
     Dates: start: 20160719, end: 201610
  4. DOXEPIN [Concomitant]
     Active Substance: DOXEPIN
  5. COMPAZINE [Concomitant]
     Active Substance: PROCHLORPERAZINE MALEATE
  6. RIBAVIRIN 600MG [Suspect]
     Active Substance: RIBAVIRIN
     Indication: HEPATITIS C
     Route: 048
     Dates: start: 20160919, end: 201610
  7. LASIX [Concomitant]
     Active Substance: FUROSEMIDE
  8. ZOFRAN [Concomitant]
     Active Substance: ONDANSETRON HYDROCHLORIDE
  9. TRAMADOL. [Concomitant]
     Active Substance: TRAMADOL
  10. ALDACTONE [Concomitant]
     Active Substance: SPIRONOLACTONE
  11. DILAUDID [Concomitant]
     Active Substance: HYDROMORPHONE HYDROCHLORIDE
  12. MORPHINE [Concomitant]
     Active Substance: MORPHINE
  13. BUMEX [Concomitant]
     Active Substance: BUMETANIDE
  14. ZANTAC [Concomitant]
     Active Substance: RANITIDINE HYDROCHLORIDE
  15. BACTRIM [Concomitant]
     Active Substance: SULFAMETHOXAZOLE\TRIMETHOPRIM
  16. OXYCODONE [Concomitant]
     Active Substance: OXYCODONE
  17. AMBIEN [Concomitant]
     Active Substance: ZOLPIDEM TARTRATE
  18. GUAIFENESIN. [Concomitant]
     Active Substance: GUAIFENESIN

REACTIONS (3)
  - Nausea [None]
  - Vomiting [None]
  - Abdominal pain [None]

NARRATIVE: CASE EVENT DATE: 20160806
